FAERS Safety Report 10443703 (Version 2)
Quarter: 2014Q3

REPORT INFORMATION
  Report Type: Spontaneous
  Country: NZ (occurrence: NZ)
  Receive Date: 20140910
  Receipt Date: 20140910
  Transmission Date: 20150326
  Serious: Yes (Hospitalization)
  Sender: FDA-Public Use
  Company Number: NZ-ROCHE-553141

PATIENT
  Sex: Male
  Weight: 45.6 kg

DRUGS (2)
  1. PEGASYS [Suspect]
     Active Substance: PEGINTERFERON ALFA-2A
     Indication: HEPATITIS C
     Dosage: FORM REPORTED: INJECTION
     Route: 065
     Dates: start: 20060228, end: 20070130
  2. RIBAVIRIN. [Suspect]
     Active Substance: RIBAVIRIN
     Indication: HEPATITIS C
     Route: 065
     Dates: start: 20060228, end: 20070130

REACTIONS (4)
  - Hepatitis C [Unknown]
  - Diarrhoea [Recovering/Resolving]
  - Colitis ulcerative [Recovering/Resolving]
  - Abdominal pain [Unknown]
